FAERS Safety Report 20954945 (Version 6)
Quarter: 2025Q3

REPORT INFORMATION
  Report Type: Report from Study
  Country: CA (occurrence: CA)
  Receive Date: 20220614
  Receipt Date: 20250718
  Transmission Date: 20251020
  Serious: Yes (Other)
  Sender: TAKEDA
  Company Number: CA-TAKEDA-2018TUS027624

PATIENT
  Age: 37 Year
  Sex: Female

DRUGS (8)
  1. VEDOLIZUMAB [Suspect]
     Active Substance: VEDOLIZUMAB
     Indication: Colitis ulcerative
  2. VEDOLIZUMAB [Suspect]
     Active Substance: VEDOLIZUMAB
  3. VEDOLIZUMAB [Suspect]
     Active Substance: VEDOLIZUMAB
  4. VEDOLIZUMAB [Suspect]
     Active Substance: VEDOLIZUMAB
  5. VEDOLIZUMAB [Suspect]
     Active Substance: VEDOLIZUMAB
  6. ENTOCORT [Concomitant]
     Active Substance: BUDESONIDE
  7. METOPROLOL [Concomitant]
     Active Substance: METOPROLOL
  8. XARELTO [Concomitant]
     Active Substance: RIVAROXABAN

REACTIONS (8)
  - Atrial fibrillation [Unknown]
  - Anaemia [Unknown]
  - COVID-19 [Unknown]
  - Productive cough [Unknown]
  - Nasal congestion [Unknown]
  - Nasopharyngitis [Unknown]
  - Sinusitis [Recovered/Resolved]
  - Cough [Unknown]

NARRATIVE: CASE EVENT DATE: 20180727
